FAERS Safety Report 14180424 (Version 1)
Quarter: 2017Q4

REPORT INFORMATION
  Report Type: Spontaneous
  Country: DE (occurrence: DE)
  Receive Date: 20171110
  Receipt Date: 20171110
  Transmission Date: 20180321
  Serious: Yes (Death)
  Sender: FDA-Public Use
  Company Number: PHHY2017DE164945

PATIENT
  Age: 52 Year
  Sex: Male

DRUGS (12)
  1. CASPOFUNGIN [Suspect]
     Active Substance: CASPOFUNGIN
     Indication: CANDIDA INFECTION
     Dosage: 50 MG, QD
     Route: 065
  2. CASPOFUNGIN [Suspect]
     Active Substance: CASPOFUNGIN
     Indication: BRONCHOPULMONARY ASPERGILLOSIS
  3. CEFTAZIDIM [Suspect]
     Active Substance: CEFTAZIDIME
     Indication: SEPSIS
     Route: 065
  4. FLUCONAZOLE. [Suspect]
     Active Substance: FLUCONAZOLE
     Indication: CANDIDA INFECTION
     Dosage: 400 MG, QD
     Route: 065
  5. PIPERACILLIN AND TAZOBACTAM [Suspect]
     Active Substance: PIPERACILLIN SODIUM\TAZOBACTAM SODIUM
     Indication: SEPSIS
     Route: 065
  6. MEROPENEM. [Suspect]
     Active Substance: MEROPENEM
     Indication: SEPSIS
     Route: 065
  7. CLINDAMYCIN. [Suspect]
     Active Substance: CLINDAMYCIN
     Indication: SEPSIS
     Route: 065
  8. CLARITHROMYCIN. [Suspect]
     Active Substance: CLARITHROMYCIN
     Indication: SEPSIS
     Route: 065
  9. ERYTHROMYCIN. [Suspect]
     Active Substance: ERYTHROMYCIN
     Indication: SEPSIS
     Route: 065
  10. METRONIDAZOL [Suspect]
     Active Substance: METRONIDAZOLE
     Indication: SEPSIS
     Route: 065
  11. PENICILLIN [Suspect]
     Active Substance: PENICILLIN
     Indication: SEPSIS
     Route: 065
  12. TIGECYCLINE. [Suspect]
     Active Substance: TIGECYCLINE
     Indication: SEPSIS
     Route: 065

REACTIONS (9)
  - Respiratory acidosis [Fatal]
  - Bronchopulmonary aspergillosis [Fatal]
  - Multiple organ dysfunction syndrome [Fatal]
  - Hypercapnia [Fatal]
  - Drug resistance [Unknown]
  - Renal failure [Fatal]
  - Respiratory disorder [Fatal]
  - Acute respiratory distress syndrome [Fatal]
  - Sepsis [Fatal]
